FAERS Safety Report 6734066-0 (Version None)
Quarter: 2010Q2

REPORT INFORMATION
  Report Type: 
  Country: None (occurrence: None)
  Receive Date: 20100520
  Receipt Date: 20100517
  Transmission Date: 20101027
  Serious: Yes (Hospitalization)
  Sender: FDA-Public Use
  Company Number: JP-B.I. PHARMACEUTICALS,INC./RIDGEFIELD-2010-BP-05654NB

PATIENT
  Age: 88 Year
  Sex: Male

DRUGS (4)
  1. SPIRIVA [Suspect]
     Indication: CHRONIC OBSTRUCTIVE PULMONARY DISEASE
     Dosage: 18 MCG
     Route: 055
     Dates: start: 20100401, end: 20100502
  2. ZYLORIC [Concomitant]
     Indication: GOUT
     Dosage: 300 MG
     Route: 048
  3. VOLTAREN [Concomitant]
     Indication: SPINAL COLUMN STENOSIS
     Dosage: 25 MG
     Route: 054
  4. AMLODIN [Concomitant]
     Indication: HYPERTENSION
     Dosage: 5 MG
     Route: 048

REACTIONS (3)
  - ILEUS [None]
  - PNEUMONIA ASPIRATION [None]
  - VOMITING [None]
